FAERS Safety Report 10403659 (Version 1)
Quarter: 2014Q3

REPORT INFORMATION
  Report Type: Spontaneous
  Country: US (occurrence: US)
  Receive Date: 20140822
  Receipt Date: 20140822
  Transmission Date: 20150326
  Serious: No
  Sender: FDA-Public Use
  Company Number: US-TARO-2013P1011982

PATIENT
  Age: 37 Year
  Sex: Female
  Weight: 40.82 kg

DRUGS (5)
  1. CLOBETASOL PROPIONATE CREAM USP 0.05% [Suspect]
     Active Substance: CLOBETASOL PROPIONATE
     Dosage: BID
     Route: 061
     Dates: start: 201107, end: 20130711
  2. FIBER SUPPLEMENT [Concomitant]
     Dosage: QD
  3. FISH OIL [Concomitant]
     Active Substance: FISH OIL
     Dosage: QD
  4. COZAAR [Concomitant]
     Active Substance: LOSARTAN POTASSIUM
     Dosage: QD
  5. UNSPECIFIED VITAMINS [Concomitant]
     Dosage: QD

REACTIONS (1)
  - Drug effect incomplete [Recovering/Resolving]

NARRATIVE: CASE EVENT DATE: 201107
